FAERS Safety Report 7658097-1 (Version None)
Quarter: 2011Q3

REPORT INFORMATION
  Report Type: 
  Country: None (occurrence: None)
  Receive Date: 20110802
  Receipt Date: 20110722
  Transmission Date: 20111222
  Serious: Yes (Other)
  Sender: FDA-Public Use
  Company Number: 991375

PATIENT
  Age: 48 Year
  Sex: Female

DRUGS (5)
  1. CITALOPRAM HYDROBROMIDE [Concomitant]
  2. LANSOPRAZOLE [Concomitant]
  3. MEROPENEM [Suspect]
     Indication: PRODUCT USED FOR UNKNOWN INDICATION
     Dosage: 2 G GRAM(S), INTRAVENOUS (NOT OTHERWISE SPECIFIED)
     Route: 042
     Dates: start: 20110614, end: 20110623
  4. ASPIRIN [Concomitant]
  5. SIMAVASTATIN [Concomitant]

REACTIONS (2)
  - PARAESTHESIA ORAL [None]
  - DYSGEUSIA [None]
